FAERS Safety Report 14537772 (Version 1)
Quarter: 2018Q1

REPORT INFORMATION
  Report Type: Spontaneous
  Country: US (occurrence: US)
  Receive Date: 20180215
  Receipt Date: 20180215
  Transmission Date: 20180509
  Serious: No
  Sender: FDA-Public Use
  Company Number: US-MICRO LABS LIMITED-ML2018-00003

PATIENT
  Sex: Female

DRUGS (1)
  1. CROMOLYN SODIUM ORAL SOLUTION 100 MG/5 ML [Suspect]
     Active Substance: CROMOLYN SODIUM
     Dosage: STRENGTH:100 MG/5 ML
     Route: 048

REACTIONS (3)
  - Gastric disorder [Recovering/Resolving]
  - Food interaction [Unknown]
  - Feeding disorder [Unknown]
